FAERS Safety Report 21865891 (Version 1)
Quarter: 2023Q1

REPORT INFORMATION
  Report Type: Spontaneous
  Country: US (occurrence: US)
  Receive Date: 20230116
  Receipt Date: 20230116
  Transmission Date: 20230418
  Serious: No
  Sender: FDA-Public Use
  Company Number: US-SA-2023SA012865

PATIENT
  Age: 13 Year
  Sex: Male

DRUGS (1)
  1. ELOCTATE [Suspect]
     Active Substance: EFMOROCTOCOG ALFA
     Dosage: 2000 IU
     Route: 042

REACTIONS (1)
  - Mouth haemorrhage [Unknown]

NARRATIVE: CASE EVENT DATE: 20230107
